FAERS Safety Report 16913371 (Version 2)
Quarter: 2020Q1

REPORT INFORMATION
  Report Type: Other
  Country: GB (occurrence: GB)
  Receive Date: 20191014
  Receipt Date: 20200312
  Transmission Date: 20200409
  Serious: Yes (Death)
  Sender: FDA-Public Use
  Company Number: GB-GLENMARK PHARMACEUTICALS-2019GMK043538

PATIENT

DRUGS (5)
  1. LAMOTRIGINE. [Suspect]
     Active Substance: LAMOTRIGINE
     Dosage: 100 MG, HS (NIGHT)
     Route: 048
     Dates: start: 20181130, end: 20181207
  2. LAMOTRIGINE. [Suspect]
     Active Substance: LAMOTRIGINE
     Dosage: 50 MG, OD
     Route: 048
     Dates: start: 20181125, end: 20181129
  3. LOFEPRAMINE HYDROCHLORIDE [Concomitant]
     Active Substance: LOFEPRAMINE HYDROCHLORIDE
     Indication: PRODUCT USED FOR UNKNOWN INDICATION
     Dosage: 140 MG, OD
     Route: 065
     Dates: start: 20180109, end: 20181214
  4. LAMOTRIGINE. [Suspect]
     Active Substance: LAMOTRIGINE
     Dosage: 200 MG, HS (NIGHT)
     Route: 048
     Dates: start: 20181208
  5. LAMOTRIGINE. [Suspect]
     Active Substance: LAMOTRIGINE
     Indication: MOOD SWINGS
     Dosage: 25 MG, HS (NIGHT)
     Route: 048
     Dates: start: 20181121, end: 20181124

REACTIONS (1)
  - Completed suicide [Fatal]
